FAERS Safety Report 15216320 (Version 7)
Quarter: 2018Q4

REPORT INFORMATION
  Report Type: Spontaneous
  Country: JP (occurrence: JP)
  Receive Date: 20180730
  Receipt Date: 20181019
  Transmission Date: 20190204
  Serious: Yes (Other)
  Sender: FDA-Public Use
  Company Number: PHJP2018JP014528

PATIENT
  Age: 75 Year
  Sex: Female
  Weight: 40.1 kg

DRUGS (8)
  1. NEVANAC [Suspect]
     Active Substance: NEPAFENAC
     Indication: POSTOPERATIVE CARE
     Dosage: 1 GTT, TID
     Route: 047
     Dates: start: 20171127, end: 20180215
  2. LEVOFLOXACIN. [Concomitant]
     Active Substance: LEVOFLOXACIN
     Indication: INFECTION PROPHYLAXIS
     Dosage: 1 GTT, TID
     Route: 047
     Dates: start: 20171127, end: 20171206
  3. DICLOSTAR [Concomitant]
     Indication: POSTOPERATIVE CARE
     Dosage: UNK
     Route: 047
  4. LUCENTIS [Concomitant]
     Active Substance: RANIBIZUMAB
     Dosage: 0.05 OT, UNK
     Route: 065
     Dates: start: 20180307, end: 20180307
  5. DIQUAS [Concomitant]
     Active Substance: DIQUAFOSOL TETRASODIUM
     Indication: DRY EYE
     Dosage: 1 GTT, 6QD
     Route: 047
     Dates: start: 20171206
  6. MUCOSTA [Concomitant]
     Active Substance: REBAMIPIDE
     Indication: DRY EYE
     Dosage: 1 GTT, QID
     Route: 047
     Dates: start: 20171206
  7. SANBETASON [Concomitant]
     Active Substance: DEXAMETHASONE
     Indication: POSTOPERATIVE CARE
     Dosage: 1 GTT, TID
     Route: 047
     Dates: start: 20171127, end: 20171206
  8. LUCENTIS [Concomitant]
     Active Substance: RANIBIZUMAB
     Indication: MACULAR OEDEMA
     Dosage: UNK
     Route: 065

REACTIONS (10)
  - Corneal epithelium defect [Unknown]
  - Conjunctival oedema [Unknown]
  - Eye pain [Unknown]
  - Ocular hyperaemia [Unknown]
  - Corneal thinning [Unknown]
  - Visual acuity reduced [Unknown]
  - Ulcerative keratitis [Recovering/Resolving]
  - Corneal infiltrates [Unknown]
  - Anterior chamber inflammation [Unknown]
  - Foreign body sensation in eyes [Unknown]

NARRATIVE: CASE EVENT DATE: 20180214
